FAERS Safety Report 7116697-1 (Version None)
Quarter: 2010Q4

REPORT INFORMATION
  Report Type: 
  Country: None (occurrence: None)
  Receive Date: 20101122
  Receipt Date: 20101116
  Transmission Date: 20110411
  Serious: Yes (Other)
  Sender: FDA-Public Use
  Company Number: B0685481A

PATIENT
  Sex: Male

DRUGS (1)
  1. NEODUPLAMOX [Suspect]
     Route: 065
     Dates: start: 20100902, end: 20100905

REACTIONS (1)
  - GASTROENTERITIS [None]
